FAERS Safety Report 10137804 (Version 1)
Quarter: 2014Q2

REPORT INFORMATION
  Report Type: Spontaneous
  Country: US (occurrence: None)
  Receive Date: 20140428
  Receipt Date: 20140428
  Transmission Date: 20141212
  Serious: Yes (Life-Threatening)
  Sender: FDA-Public Use
  Company Number: None

PATIENT
  Sex: Female

DRUGS (1)
  1. HYDROCODONE NORCO [Suspect]
     Indication: PAIN
     Route: 048

REACTIONS (4)
  - Haematemesis [None]
  - Ulcer [None]
  - Vomiting [None]
  - Drug ineffective [None]
